FAERS Safety Report 5331404-0 (Version None)
Quarter: 2007Q2

REPORT INFORMATION
  Report Type: 
  Country: None (occurrence: None)
  Receive Date: 20070516
  Receipt Date: 20070508
  Transmission Date: 20071010
  Serious: Yes (Other)
  Sender: FDA-Public Use
  Company Number: 07H-163-0312564-00

PATIENT
  Age: 74 Year
  Sex: Female

DRUGS (2)
  1. ETOMIDATE [Suspect]
     Indication: INDUCTION OF ANAESTHESIA
     Dosage: 0.3 MG/KG, ONCE, NOT REPORTED ONCE
  2. SUCCINYLCHOLINE CHLORIDE [Concomitant]

REACTIONS (7)
  - ADRENAL INSUFFICIENCY [None]
  - DRUG INEFFECTIVE [None]
  - HAEMODYNAMIC INSTABILITY [None]
  - HYPOTENSION [None]
  - LETHARGY [None]
  - POST PROCEDURAL COMPLICATION [None]
  - SINUS BRADYCARDIA [None]
